FAERS Safety Report 9992007 (Version 1)
Quarter: 2014Q1

REPORT INFORMATION
  Report Type: Spontaneous
  Country: CZ (occurrence: CZ)
  Receive Date: 20140310
  Receipt Date: 20140310
  Transmission Date: 20141002
  Serious: Yes (Death)
  Sender: FDA-Public Use
  Company Number: CZ-JNJFOC-20140217566

PATIENT
  Sex: 0

DRUGS (1)
  1. DOXORUBICIN [Suspect]
     Indication: HEPATOCELLULAR CARCINOMA
     Route: 042

REACTIONS (6)
  - Liver abscess [Fatal]
  - Disease progression [Fatal]
  - Death [Fatal]
  - Hepatic failure [Fatal]
  - Off label use [Unknown]
  - Incorrect route of drug administration [Unknown]
